FAERS Safety Report 8702645 (Version 3)
Quarter: 2013Q1

REPORT INFORMATION
  Report Type: Spontaneous
  Country: JP (occurrence: JP)
  Receive Date: 20120803
  Receipt Date: 20130218
  Transmission Date: 20140127
  Serious: Yes (Hospitalization)
  Sender: FDA-Public Use
  Company Number: JP-GLAXOSMITHKLINE-B0816024A

PATIENT
  Age: 41 None
  Sex: Male

DRUGS (8)
  1. LAMICTAL [Suspect]
     Indication: BIPOLAR DISORDER
     Route: 048
     Dates: start: 201205
  2. LAMICTAL [Suspect]
     Indication: BIPOLAR DISORDER
     Dosage: 100MG TWICE PER DAY
     Route: 048
     Dates: end: 20120711
  3. SOLUMEDROL [Suspect]
     Indication: PRODUCT USED FOR UNKNOWN INDICATION
     Route: 042
     Dates: start: 201207
  4. LIMAS [Concomitant]
     Indication: BIPOLAR DISORDER
     Dosage: 400MG TWICE PER DAY
     Route: 048
  5. BENZALIN [Concomitant]
     Dosage: 10MG PER DAY
     Route: 048
  6. SILECE [Concomitant]
     Indication: INSOMNIA
     Dosage: 1MG PER DAY
     Route: 065
  7. SENIRAN [Concomitant]
     Dosage: 2MG TWICE PER DAY
     Route: 048
  8. NARCARICIN [Concomitant]
     Route: 048

REACTIONS (14)
  - Drug reaction with eosinophilia and systemic symptoms [Recovered/Resolved]
  - Pneumonia [Recovering/Resolving]
  - Eosinophilia [Recovered/Resolved]
  - Rash [Recovered/Resolved]
  - Dermatitis contact [Unknown]
  - Pyrexia [Recovered/Resolved]
  - Nausea [Recovered/Resolved]
  - Decreased appetite [Recovered/Resolved]
  - Cough [Recovered/Resolved]
  - Pruritus [Recovered/Resolved]
  - Generalised erythema [Recovered/Resolved]
  - Face oedema [Recovered/Resolved]
  - White blood cell count increased [Recovered/Resolved]
  - Hepatic function abnormal [Recovered/Resolved]
